FAERS Safety Report 23909376 (Version 1)
Quarter: 2024Q2

REPORT INFORMATION
  Report Type: Spontaneous
  Country: GR (occurrence: GR)
  Receive Date: 20240528
  Receipt Date: 20240528
  Transmission Date: 20240716
  Serious: Yes (Hospitalization, Disabling)
  Sender: FDA-Public Use
  Company Number: None

PATIENT
  Age: 51 Year
  Sex: Male

DRUGS (3)
  1. PALIPERIDONE [Suspect]
     Active Substance: PALIPERIDONE
     Indication: Depression
     Dosage: PALIPERIDONE TEVA
     Route: 048
     Dates: start: 202401
  2. XANAX [Concomitant]
     Active Substance: ALPRAZOLAM
     Indication: Personality disorder
     Dosage: 0.5 MG X 3,
     Route: 048
     Dates: start: 2010
  3. FLONITAL [Concomitant]
     Indication: Depression
     Dosage: 20MG X2,
     Route: 048
     Dates: start: 202207

REACTIONS (1)
  - Diabetes mellitus inadequate control [Recovered/Resolved with Sequelae]

NARRATIVE: CASE EVENT DATE: 20240301
